FAERS Safety Report 4511938-9 (Version None)
Quarter: 2004Q4

REPORT INFORMATION
  Report Type: 
  Country: None (occurrence: None)
  Receive Date: 20041123
  Receipt Date: 20041115
  Transmission Date: 20050328
  Serious: Yes (Hospitalization)
  Sender: FDA-Public Use
  Company Number: 2004UW23529

PATIENT
  Age: 83 Year
  Sex: Female

DRUGS (1)
  1. TOPROL-XL [Suspect]
     Dosage: 100-125 MG DAILY

REACTIONS (3)
  - ATRIOVENTRICULAR BLOCK [None]
  - EJECTION FRACTION DECREASED [None]
  - FALL [None]
